FAERS Safety Report 8904836 (Version 2)
Quarter: 2012Q4

REPORT INFORMATION
  Report Type: Report from Study
  Country: DE (occurrence: DE)
  Receive Date: 20121109
  Receipt Date: 20121127
  Transmission Date: 20130627
  Serious: Yes (Death)
  Sender: FDA-Public Use
  Company Number: DE-ABBOTT-12P-062-1006771-00

PATIENT
  Age: 83 Year
  Sex: Male

DRUGS (2)
  1. TRENANTONE [Suspect]
     Indication: PROSTATE CANCER
     Route: 058
     Dates: start: 20111220, end: 20120620
  2. ANTIANDROGENS [Concomitant]
     Indication: PROSTATE CANCER

REACTIONS (1)
  - Renal failure acute [Fatal]
